FAERS Safety Report 21538797 (Version 1)
Quarter: 2022Q4

REPORT INFORMATION
  Report Type: Report from Study
  Country: US (occurrence: US)
  Receive Date: 20221102
  Receipt Date: 20221102
  Transmission Date: 20230113
  Serious: Yes (Hospitalization, Other)
  Sender: FDA-Public Use
  Company Number: US-BRISTOL-MYERS SQUIBB COMPANY-2022-127643

PATIENT
  Age: 77 Year
  Sex: Female

DRUGS (1)
  1. REVLIMID [Suspect]
     Active Substance: LENALIDOMIDE
     Indication: Myelodysplastic syndrome
     Dosage: FREQUENCY-28.
     Route: 065
     Dates: start: 20220620

REACTIONS (6)
  - Dyspnoea [Unknown]
  - Infection [Unknown]
  - Gastrointestinal disorder [Unknown]
  - Asthenia [Unknown]
  - Rash pruritic [Unknown]
  - Drug ineffective [Unknown]
